FAERS Safety Report 8400262-X (Version None)
Quarter: 2012Q2

REPORT INFORMATION
  Report Type: 
  Country: None (occurrence: None)
  Receive Date: 20120531
  Receipt Date: 20120521
  Transmission Date: 20120825
  Serious: Yes (Other)
  Sender: FDA-Public Use
  Company Number: JP-VERTEX PHARMACEUTICALS INC.-AE-2012-007738

PATIENT
  Age: 45 Year
  Sex: Male

DRUGS (3)
  1. PEG-INTRON [Concomitant]
     Route: 051
     Dates: start: 20120514
  2. TELAVIC (TELAPREVIR) [Suspect]
     Indication: HEPATITIS C
     Route: 048
     Dates: start: 20120514, end: 20120520
  3. REBETOL [Concomitant]
     Route: 048
     Dates: start: 20120514

REACTIONS (1)
  - DECREASED APPETITE [None]
